FAERS Safety Report 23222844 (Version 1)
Quarter: 2023Q4

REPORT INFORMATION
  Report Type: Spontaneous
  Country: IT (occurrence: None)
  Receive Date: 20231123
  Receipt Date: 20231123
  Transmission Date: 20240109
  Serious: Yes (Other)
  Sender: FDA-Public Use
  Company Number: 2023A261788

PATIENT

DRUGS (3)
  1. DAPAGLIFLOZIN [Suspect]
     Active Substance: DAPAGLIFLOZIN
     Indication: Chronic kidney disease
     Route: 048
  2. HOMOCYSTEINE [Concomitant]
     Active Substance: HOMOCYSTEINE
  3. FOLINE [Concomitant]

REACTIONS (2)
  - Thrombosis [Unknown]
  - Visual impairment [Unknown]
